FAERS Safety Report 17864151 (Version 1)
Quarter: 2020Q2

REPORT INFORMATION
  Report Type: Spontaneous
  Country: US (occurrence: US)
  Receive Date: 20200605
  Receipt Date: 20200605
  Transmission Date: 20200714
  Serious: No
  Sender: FDA-Public Use
  Company Number: US-TARO-2020TAR00097

PATIENT

DRUGS (8)
  1. PHENYTOIN SODIUM EXTENDED [Suspect]
     Active Substance: PHENYTOIN SODIUM
     Indication: EPILEPSY
     Dosage: 100 MILLIGRAM, BID (INTERMITTENTLY)
     Route: 048
     Dates: start: 1967
  2. PAROXATINE [Concomitant]
     Indication: PRODUCT USED FOR UNKNOWN INDICATION
     Dosage: UNK
     Route: 065
  3. PHENYTOIN CHEWABLE TABLETS USP 50 MG [Suspect]
     Active Substance: PHENYTOIN
     Indication: EPILEPSY
     Dosage: 50 MILLIGRAM, BID (INTERMITTENTLY)
     Route: 048
     Dates: start: 1967
  4. RESPIRIDONE [Concomitant]
     Active Substance: RISPERIDONE
     Indication: PRODUCT USED FOR UNKNOWN INDICATION
     Dosage: UNK
     Route: 065
  5. VITAMIN C [Concomitant]
     Active Substance: ASCORBIC ACID
     Indication: PRODUCT USED FOR UNKNOWN INDICATION
     Dosage: UNK
     Route: 065
  6. MANGANESE [Concomitant]
     Active Substance: MANGANESE CHLORIDE
     Indication: PRODUCT USED FOR UNKNOWN INDICATION
     Dosage: UNK
     Route: 065
  7. MAGNESIUM [Concomitant]
     Active Substance: MAGNESIUM
     Indication: PRODUCT USED FOR UNKNOWN INDICATION
     Dosage: UNK
     Route: 065
  8. LITHIUM. [Concomitant]
     Active Substance: LITHIUM
     Indication: PRODUCT USED FOR UNKNOWN INDICATION
     Dosage: UNK
     Route: 065

REACTIONS (3)
  - Dysarthria [Unknown]
  - Insomnia [Unknown]
  - Dyspnoea [Unknown]
